FAERS Safety Report 10362035 (Version 2)
Quarter: 2014Q3

REPORT INFORMATION
  Report Type: Spontaneous
  Country: US (occurrence: US)
  Receive Date: 20140805
  Receipt Date: 20140820
  Transmission Date: 20150326
  Serious: Yes (Hospitalization, Other)
  Sender: FDA-Public Use
  Company Number: US-AMGEN-USASP2014058411

PATIENT
  Age: 51 Year
  Sex: Female

DRUGS (1)
  1. ENBREL [Suspect]
     Active Substance: ETANERCEPT
     Indication: RHEUMATOID ARTHRITIS
     Dosage: 50 MG, QWK
     Route: 065
     Dates: start: 20121101

REACTIONS (24)
  - Weight decreased [Recovered/Resolved]
  - Pain in extremity [Not Recovered/Not Resolved]
  - Musculoskeletal pain [Not Recovered/Not Resolved]
  - Haematemesis [Recovered/Resolved]
  - Drug effect incomplete [Unknown]
  - Nasopharyngitis [Recovered/Resolved]
  - Osteoarthritis [Not Recovered/Not Resolved]
  - Heart rate increased [Unknown]
  - Transient ischaemic attack [Not Recovered/Not Resolved]
  - Infusion site haemorrhage [Unknown]
  - Pain [Not Recovered/Not Resolved]
  - Spinal cord haemorrhage [Recovered/Resolved]
  - Dislocation of vertebra [Recovered/Resolved]
  - Photosensitivity reaction [Recovered/Resolved]
  - Headache [Recovered/Resolved]
  - Feeling abnormal [Not Recovered/Not Resolved]
  - Cardiac failure [Not Recovered/Not Resolved]
  - Nerve compression [Unknown]
  - Arthralgia [Not Recovered/Not Resolved]
  - Computerised tomogram abnormal [Not Recovered/Not Resolved]
  - Dyskinesia [Not Recovered/Not Resolved]
  - Nerve injury [Unknown]
  - Bleeding time abnormal [Unknown]
  - Fatigue [Not Recovered/Not Resolved]

NARRATIVE: CASE EVENT DATE: 20121101
